FAERS Safety Report 21570461 (Version 2)
Quarter: 2022Q4

REPORT INFORMATION
  Report Type: Report from Study
  Country: DE (occurrence: None)
  Receive Date: 20221109
  Receipt Date: 20221123
  Transmission Date: 20230112
  Serious: Yes (Hospitalization)
  Sender: FDA-Public Use
  Company Number: DE-ROCHE-3212841

PATIENT
  Age: 62 Year
  Sex: Female
  Weight: 74.5 kg

DRUGS (9)
  1. ATEZOLIZUMAB [Suspect]
     Active Substance: ATEZOLIZUMAB
     Indication: Triple negative breast cancer
     Dosage: DATE OF LAST DOSE PRIOR TO SAE: 29/SEP/2022
     Route: 041
     Dates: start: 20220609
  2. PACLITAXEL [Suspect]
     Active Substance: PACLITAXEL
     Indication: Triple negative breast cancer
     Dosage: DATE OF LAST DOSE PRIOR TO SAE: 22/SEP/2022
     Route: 042
     Dates: start: 20220623
  3. CARBOPLATIN [Suspect]
     Active Substance: CARBOPLATIN
     Indication: Triple negative breast cancer
     Dosage: DATE OF LAST DOSE PRIOR TO SAE: 22/SEP/2022
     Route: 042
     Dates: start: 20220623
  4. EPIRUBICIN [Suspect]
     Active Substance: EPIRUBICIN
     Indication: Triple negative breast cancer
     Dosage: DATE OF LAST DOSE PRIOR TO SAE: 29/SEP/2022
     Route: 042
     Dates: start: 20220929
  5. CYCLOPHOSPHAMIDE [Suspect]
     Active Substance: CYCLOPHOSPHAMIDE
     Indication: Triple negative breast cancer
     Dosage: DATE OF LAST DOSE PRIOR TO SAE: 29/SEP/2022
     Route: 042
     Dates: start: 20220929
  6. ENALAPRIL [Concomitant]
     Active Substance: ENALAPRIL
  7. METOPROLOL [Concomitant]
     Active Substance: METOPROLOL
  8. AMOXICILLIN [Concomitant]
     Active Substance: AMOXICILLIN
     Dates: start: 20220726
  9. CLAVULANIC ACID [Concomitant]
     Active Substance: CLAVULANIC ACID
     Dates: start: 20220726

REACTIONS (2)
  - Neutrophil count decreased [Recovered/Resolved with Sequelae]
  - General physical health deterioration [Recovered/Resolved]

NARRATIVE: CASE EVENT DATE: 20221005
